FAERS Safety Report 8227131-2 (Version None)
Quarter: 2012Q1

REPORT INFORMATION
  Report Type: 
  Country: None (occurrence: None)
  Receive Date: 20120322
  Receipt Date: 20120315
  Transmission Date: 20120608
  Serious: Yes (Other)
  Sender: FDA-Public Use
  Company Number: CA-JNJFOC-20120307965

PATIENT
  Age: 15 Year
  Sex: Female

DRUGS (1)
  1. CONCERTA [Suspect]
     Indication: PRODUCT USED FOR UNKNOWN INDICATION
     Route: 048
     Dates: start: 20120309

REACTIONS (2)
  - BLOOD PRESSURE ABNORMAL [None]
  - EPISTAXIS [None]
